FAERS Safety Report 4294890-3 (Version None)
Quarter: 2004Q1

REPORT INFORMATION
  Report Type: 
  Country: None (occurrence: None)
  Receive Date: 20040216
  Receipt Date: 20030211
  Transmission Date: 20041129
  Serious: No
  Sender: FDA-Public Use
  Company Number: US-GLAXOSMITHKLINE-A0396292A

PATIENT
  Sex: Female

DRUGS (3)
  1. LAMICTAL [Suspect]
     Dosage: 25MG PER DAY
     Route: 048
     Dates: start: 20020101
  2. TOPAMAX [Concomitant]
  3. CONCURRENT MEDICATIONS [Concomitant]

REACTIONS (3)
  - DYSPNOEA [None]
  - URTICARIA [None]
  - VISUAL DISTURBANCE [None]
